FAERS Safety Report 19609171 (Version 1)
Quarter: 2021Q3

REPORT INFORMATION
  Report Type: Spontaneous
  Country: US (occurrence: US)
  Receive Date: 20210725
  Receipt Date: 20210725
  Transmission Date: 20211014
  Serious: No
  Sender: FDA-Public Use
  Company Number: None

PATIENT
  Age: 38 Year
  Sex: Female
  Weight: 125 kg

DRUGS (12)
  1. PROPRANOLOL [Concomitant]
     Active Substance: PROPRANOLOL HYDROCHLORIDE
  2. FERROUS SULFATE. [Concomitant]
     Active Substance: FERROUS SULFATE
  3. LITHIUM CARBONATE. [Concomitant]
     Active Substance: LITHIUM CARBONATE
  4. HALOPERIDOL DECANOATE. [Suspect]
     Active Substance: HALOPERIDOL DECANOATE
     Indication: SCHIZOAFFECTIVE DISORDER
     Dosage: ?          OTHER FREQUENCY:EVERY 28 DAYS;?
     Route: 030
     Dates: start: 20200818, end: 20210330
  5. AMLODIPINE [Concomitant]
     Active Substance: AMLODIPINE BESYLATE
  6. HALOPERIDOL DECANOATE. [Suspect]
     Active Substance: HALOPERIDOL DECANOATE
     Dosage: ?          OTHER FREQUENCY:EVERY 28 DAYS;?
     Route: 030
  7. LANTUS [Concomitant]
     Active Substance: INSULIN GLARGINE
  8. HALOPERIDOL TABLETS [Concomitant]
     Active Substance: HALOPERIDOL
  9. DIVALPROEX DR [Concomitant]
     Active Substance: DIVALPROEX SODIUM
  10. LINAGLIPTAN [Concomitant]
  11. FOLIC ACID. [Concomitant]
     Active Substance: FOLIC ACID
  12. NORETHINDRONE. [Concomitant]
     Active Substance: NORETHINDRONE

REACTIONS (5)
  - Pain [None]
  - Injection site induration [None]
  - Pyrexia [None]
  - Insulin resistance [None]
  - C-reactive protein increased [None]

NARRATIVE: CASE EVENT DATE: 20210330
